FAERS Safety Report 11997800 (Version 2)
Quarter: 2016Q1

REPORT INFORMATION
  Report Type: Report from Study
  Country: CA (occurrence: CA)
  Receive Date: 20160203
  Receipt Date: 20160208
  Transmission Date: 20160526
  Serious: Yes (Hospitalization)
  Sender: FDA-Public Use
  Company Number: CA-ABBVIE-15P-028-1439569-00

PATIENT
  Age: 29 Year
  Sex: Male
  Weight: 77.18 kg

DRUGS (6)
  1. PANTOLOC [Concomitant]
     Active Substance: PANTOPRAZOLE SODIUM
     Indication: PRODUCT USED FOR UNKNOWN INDICATION
     Route: 048
  2. TRUVADA [Concomitant]
     Active Substance: EMTRICITABINE\TENOFOVIR DISOPROXIL FUMARATE
     Indication: HIV INFECTION
     Dosage: DAILY DOSE:  200/300 MG; UNIT DOSE:  200/300 MG
     Route: 048
     Dates: start: 20140730
  3. TEVA PREGABALIN [Concomitant]
     Active Substance: PREGABALIN
     Indication: HYPOAESTHESIA
     Route: 048
  4. KALETRA [Suspect]
     Active Substance: LOPINAVIR\RITONAVIR
     Indication: ANTIRETROVIRAL THERAPY
     Dosage: DAILY DOSE:  800 MG/200 MG; FORM STRENGTH:  200 MG/50 MG
     Route: 048
     Dates: start: 20130730
  5. CORTISONE [Suspect]
     Active Substance: CORTISONE\HYDROCORTISONE
     Indication: PRODUCT USED FOR UNKNOWN INDICATION
     Route: 065
  6. WELLBUTRIN [Concomitant]
     Active Substance: BUPROPION HYDROCHLORIDE
     Indication: DEPRESSION
     Route: 048

REACTIONS (17)
  - Pharyngitis [Unknown]
  - Nodule [Unknown]
  - Depressed level of consciousness [Recovered/Resolved]
  - Somnolence [Unknown]
  - Swelling [Unknown]
  - Lymphadenopathy [Unknown]
  - Rash [Unknown]
  - Asthma [Unknown]
  - Speech disorder [Recovered/Resolved]
  - Cardiac disorder [Recovered/Resolved]
  - Urethritis [Recovered/Resolved]
  - Blood pressure increased [Unknown]
  - Lymph node pain [Unknown]
  - Rash papular [Unknown]
  - Purulent discharge [Recovered/Resolved]
  - Heart rate increased [Recovered/Resolved]
  - Infection [Recovered/Resolved]

NARRATIVE: CASE EVENT DATE: 2015
